FAERS Safety Report 6262977-1 (Version None)
Quarter: 2009Q3

REPORT INFORMATION
  Report Type: 
  Country: None (occurrence: None)
  Receive Date: 20090710
  Receipt Date: 20090706
  Transmission Date: 20100115
  Serious: Yes (Other)
  Sender: FDA-Public Use
  Company Number: US-JNJCH-2009018409

PATIENT
  Age: 22 Year
  Sex: Female
  Weight: 67.1 kg

DRUGS (1)
  1. COOL MINT LISTERINE POCKETMIST [Suspect]
     Indication: ACCIDENTAL EXPOSURE
     Dosage: TEXT:1 SQUIRT ONCE
     Route: 047
     Dates: start: 20090705, end: 20090705

REACTIONS (2)
  - ACCIDENTAL EXPOSURE [None]
  - VISION BLURRED [None]
